FAERS Safety Report 4768278-2 (Version None)
Quarter: 2005Q3

REPORT INFORMATION
  Report Type: 
  Country: None (occurrence: None)
  Receive Date: 20050914
  Receipt Date: 20050808
  Transmission Date: 20060218
  Serious: Yes (Hospitalization)
  Sender: FDA-Public Use
  Company Number: JP-SP-2005-01522

PATIENT
  Age: 79 Year
  Sex: Male

DRUGS (5)
  1. IMMUCYST [Suspect]
     Indication: BLADDER CANCER
     Dosage: TOTAL DOSE : 648 MG
     Route: 043
     Dates: start: 20050627, end: 20050829
  2. ACEGLATONE [Concomitant]
  3. EPALRESTAT [Concomitant]
  4. MITIGLINIDE CALCIUM HYDRATE [Concomitant]
  5. GLICLAZIDE [Concomitant]

REACTIONS (1)
  - PYREXIA [None]
